FAERS Safety Report 5445293-7 (Version None)
Quarter: 2007Q3

REPORT INFORMATION
  Report Type: 
  Country: None (occurrence: None)
  Receive Date: 20070906
  Receipt Date: 20070413
  Transmission Date: 20080115
  Serious: Yes (Other)
  Sender: FDA-Public Use
  Company Number: A0647205A

PATIENT
  Age: 71 Year
  Sex: Female

DRUGS (7)
  1. REQUIP [Suspect]
     Indication: PARKINSON'S DISEASE
     Dosage: 4MG THREE TIMES PER DAY
     Route: 048
  2. SINEMET CR [Concomitant]
  3. SINEMET [Concomitant]
  4. LEXAPRO [Concomitant]
  5. ZYPREXA [Concomitant]
  6. MULTI-VITAMIN [Concomitant]
  7. MOTRIN [Concomitant]

REACTIONS (1)
  - PARESIS [None]
